FAERS Safety Report 6495294-5 (Version None)
Quarter: 2009Q4

REPORT INFORMATION
  Report Type: 
  Country: None (occurrence: None)
  Receive Date: 20091214
  Receipt Date: 20090624
  Transmission Date: 20100525
  Serious: Yes (Hospitalization)
  Sender: FDA-Public Use
  Company Number: US-BRISTOL-MYERS SQUIBB COMPANY-14635403

PATIENT
  Age: 40 Year
  Sex: Female

DRUGS (2)
  1. ABILIFY [Suspect]
     Indication: BIPOLAR DISORDER
     Dosage: START DATE OF THERAPY: STARTED TWO WEEKS BEFORE
     Route: 048
  2. PROZAC [Suspect]
     Indication: BIPOLAR DISORDER

REACTIONS (2)
  - AKATHISIA [None]
  - SUICIDAL IDEATION [None]
